FAERS Safety Report 6464100-7 (Version None)
Quarter: 2009Q4

REPORT INFORMATION
  Report Type: 
  Country: None (occurrence: None)
  Receive Date: 20091201
  Receipt Date: 20091119
  Transmission Date: 20100525
  Serious: Yes (Life-Threatening, Hospitalization)
  Sender: FDA-Public Use
  Company Number: FR-AMGEN-US368443

PATIENT
  Sex: Female

DRUGS (5)
  1. ENBREL [Suspect]
     Indication: RHEUMATOID ARTHRITIS
     Dosage: 50 MG TOTAL WEEKLY
     Route: 058
     Dates: start: 20060701, end: 20090601
  2. LANSOPRAZOLE [Concomitant]
     Route: 048
  3. PLAVIX [Concomitant]
     Indication: ARTERITIS
     Route: 048
  4. PRITOR [Concomitant]
     Indication: HYPERTENSION
     Route: 048
  5. ATENOLOL [Concomitant]
     Indication: HYPERTENSION
     Route: 048

REACTIONS (6)
  - ARTERITIS [None]
  - CARDIAC FAILURE [None]
  - CONDITION AGGRAVATED [None]
  - GUILLAIN-BARRE SYNDROME [None]
  - JAUNDICE CHOLESTATIC [None]
  - JUGULAR VEIN THROMBOSIS [None]
